FAERS Safety Report 7307335-3 (Version None)
Quarter: 2011Q1

REPORT INFORMATION
  Report Type: 
  Country: None (occurrence: None)
  Receive Date: 20110223
  Receipt Date: 20110215
  Transmission Date: 20110831
  Serious: Yes (Hospitalization, Other)
  Sender: FDA-Public Use
  Company Number: US-PFIZER INC-2010133872

PATIENT
  Sex: Male
  Weight: 79.8 kg

DRUGS (1)
  1. SUTENT [Suspect]
     Indication: METASTATIC RENAL CELL CARCINOMA
     Dosage: 50 MG, DAILY, 4 WEEKS ON AND 2 WEEKS OFF
     Route: 048
     Dates: start: 20100929, end: 20101105

REACTIONS (4)
  - RASH [None]
  - URINARY TRACT INFECTION [None]
  - OESOPHAGEAL OBSTRUCTION [None]
  - GENITAL ERYTHEMA [None]
